FAERS Safety Report 10497665 (Version 2)
Quarter: 2014Q4

REPORT INFORMATION
  Report Type: Spontaneous
  Country: US (occurrence: None)
  Receive Date: 20141002
  Receipt Date: 20141212
  Transmission Date: 20150528
  Serious: Yes (Other)
  Sender: FDA-Public Use
  Company Number: 2014-US-012327

PATIENT
  Sex: Male

DRUGS (1)
  1. XYREM [Suspect]
     Active Substance: SODIUM OXYBATE
     Indication: INSOMNIA
     Route: 048
     Dates: start: 200810, end: 200811

REACTIONS (4)
  - Foot fracture [None]
  - Prescribed overdose [None]
  - Pain in extremity [None]
  - Off label use [None]

NARRATIVE: CASE EVENT DATE: 2010
